FAERS Safety Report 10142650 (Version 1)
Quarter: 2014Q2

REPORT INFORMATION
  Report Type: Spontaneous
  Country: US (occurrence: US)
  Receive Date: 20140430
  Receipt Date: 20140430
  Transmission Date: 20141212
  Serious: Yes (Other)
  Sender: FDA-Public Use
  Company Number: US-JNJFOC-20140406728

PATIENT
  Sex: Female
  Weight: 77.11 kg

DRUGS (8)
  1. ELMIRON [Suspect]
     Indication: CYSTITIS INTERSTITIAL
     Route: 048
     Dates: start: 201402
  2. ELMIRON [Suspect]
     Indication: CYSTITIS INTERSTITIAL
     Route: 048
     Dates: start: 200812, end: 201401
  3. ELMIRON [Suspect]
     Indication: CYSTITIS INTERSTITIAL
     Route: 048
     Dates: start: 201401, end: 201402
  4. ELMIRON [Suspect]
     Indication: CYSTITIS INTERSTITIAL
     Route: 048
     Dates: start: 2008, end: 200812
  5. SYNTHROID [Concomitant]
     Indication: THYROID DISORDER
     Route: 048
     Dates: start: 1998
  6. CYTOMEL [Concomitant]
     Indication: THYROID DISORDER
     Route: 048
     Dates: start: 2013
  7. ATARAX [Concomitant]
     Indication: CYSTITIS INTERSTITIAL
     Route: 048
     Dates: start: 2008
  8. PROGESTERONE [Concomitant]
     Indication: BLOOD OESTROGEN INCREASED
     Route: 048
     Dates: start: 2012

REACTIONS (5)
  - Cystitis interstitial [Recovered/Resolved]
  - Weight increased [Not Recovered/Not Resolved]
  - Headache [Recovered/Resolved]
  - Diarrhoea [Recovering/Resolving]
  - Abdominal discomfort [Recovering/Resolving]
